FAERS Safety Report 10658871 (Version 1)
Quarter: 2014Q4

REPORT INFORMATION
  Report Type: Spontaneous
  Country: US (occurrence: None)
  Receive Date: 20141208
  Receipt Date: 20141208
  Transmission Date: 20150529
  Serious: No
  Sender: FDA-Public Use
  Company Number: 2015TUS008486

PATIENT
  Age: 39 Year
  Sex: Female
  Weight: 87.7 kg

DRUGS (4)
  1. DEXILANT(DEXLANSOPRAZOLE) [Concomitant]
  2. MONTELUKAST(MONTELUKAST) [Concomitant]
  3. BRINTELLIX [Suspect]
     Active Substance: VORTIOXETINE HYDROBROMIDE
     Indication: ANXIETY
     Route: 048
     Dates: start: 20140811, end: 20140824
  4. BRINTELLIX [Suspect]
     Active Substance: VORTIOXETINE HYDROBROMIDE
     Indication: DEPRESSION
     Route: 048
     Dates: start: 20140811, end: 20140824

REACTIONS (7)
  - Abdominal discomfort [None]
  - Frequent bowel movements [None]
  - Headache [None]
  - Dizziness [None]
  - Blood pressure increased [None]
  - Feeling jittery [None]
  - Pruritus generalised [None]

NARRATIVE: CASE EVENT DATE: 20140828
